FAERS Safety Report 6833549-2 (Version None)
Quarter: 2010Q3

REPORT INFORMATION
  Report Type: 
  Country: None (occurrence: None)
  Receive Date: 20100712
  Receipt Date: 20070326
  Transmission Date: 20110219
  Serious: No
  Sender: FDA-Public Use
  Company Number: US-PFIZER INC-2007025033

PATIENT
  Sex: Female
  Weight: 74.39 kg

DRUGS (5)
  1. CHANTIX [Suspect]
     Indication: SMOKING CESSATION THERAPY
     Dates: start: 20070323, end: 20070323
  2. TRANXENE [Concomitant]
  3. XANAX [Concomitant]
  4. AMBIEN [Concomitant]
  5. VITAMINS [Concomitant]

REACTIONS (7)
  - CONFUSIONAL STATE [None]
  - DISTURBANCE IN ATTENTION [None]
  - DYSPNOEA [None]
  - HEART RATE INCREASED [None]
  - MALAISE [None]
  - MENTAL IMPAIRMENT [None]
  - TACHYCARDIA [None]
